FAERS Safety Report 4404585-0 (Version None)
Quarter: 2004Q3

REPORT INFORMATION
  Report Type: 
  Country: None (occurrence: None)
  Receive Date: 20040720
  Receipt Date: 20040709
  Transmission Date: 20050211
  Serious: Yes (Hospitalization)
  Sender: FDA-Public Use
  Company Number: 2004223156FR

PATIENT
  Age: 65 Year
  Sex: Female

DRUGS (3)
  1. AROMASIN [Suspect]
     Dates: start: 20040519, end: 20040601
  2. NOLVADEX [Concomitant]
  3. LEVOTHYROXINE SODIUM [Concomitant]

REACTIONS (3)
  - DIARRHOEA [None]
  - INNER EAR DISORDER [None]
  - VERTIGO [None]
